FAERS Safety Report 23344084 (Version 2)
Quarter: 2024Q1

REPORT INFORMATION
  Report Type: Report from Study
  Country: US (occurrence: US)
  Receive Date: 20231227
  Receipt Date: 20240126
  Transmission Date: 20240410
  Serious: Yes (Other)
  Sender: FDA-Public Use
  Company Number: US-ABBVIE-5554828

PATIENT
  Age: 53 Year
  Sex: Female

DRUGS (2)
  1. HUMIRA [Suspect]
     Active Substance: ADALIMUMAB
     Indication: Crohn^s disease
     Dosage: FORM STRENGTH: 40 MG?CITRATE FREE ?THERAPY END DATE 2023
     Route: 058
     Dates: start: 20230712
  2. HUMIRA [Suspect]
     Active Substance: ADALIMUMAB
     Dosage: FORM STRENGTH: 40MG/CITRATE FREE
     Route: 058
     Dates: start: 202312

REACTIONS (2)
  - Large intestine polyp [Unknown]
  - Colitis [Unknown]

NARRATIVE: CASE EVENT DATE: 20231120
